FAERS Safety Report 8502915-1 (Version None)
Quarter: 2012Q3

REPORT INFORMATION
  Report Type: 
  Country: None (occurrence: None)
  Receive Date: 20120711
  Receipt Date: 20120629
  Transmission Date: 20120928
  Serious: Yes (Other)
  Sender: FDA-Public Use
  Company Number: JP-PFIZER INC-2012117795

PATIENT
  Age: 63 Year
  Sex: Female

DRUGS (4)
  1. MICARDIS [Suspect]
     Dosage: 10 MG, DAILY
     Route: 048
  2. LIPITOR [Suspect]
     Indication: HYPERLIPIDAEMIA
     Dosage: 40 MG, DAILY
     Route: 048
  3. NORVASC [Suspect]
     Dosage: UNK
     Route: 048
  4. ALLOPURINOL [Suspect]
     Dosage: UNK
     Route: 048

REACTIONS (1)
  - RENAL IMPAIRMENT [None]
